FAERS Safety Report 6596569-1 (Version None)
Quarter: 2010Q1

REPORT INFORMATION
  Report Type: 
  Country: None (occurrence: None)
  Receive Date: 20100222
  Receipt Date: 20100222
  Transmission Date: 20100710
  Serious: Yes (Hospitalization)
  Sender: FDA-Public Use
  Company Number: None

PATIENT
  Sex: Female
  Weight: 58.6 kg

DRUGS (1)
  1. ACTIQ [Suspect]
     Dosage: 200 MICROGRAM ONCE BUCCAL
     Route: 002
     Dates: start: 20100116

REACTIONS (1)
  - KIDNEY INFECTION [None]
